FAERS Safety Report 15733840 (Version 1)
Quarter: 2018Q4

REPORT INFORMATION
  Report Type: Spontaneous
  Country: IT (occurrence: IT)
  Receive Date: 20181218
  Receipt Date: 20181218
  Transmission Date: 20190205
  Serious: Yes (Other)
  Sender: FDA-Public Use
  Company Number: IT-AUROBINDO-AUR-APL-2018-011118

PATIENT
  Age: 62 Year
  Sex: Female
  Weight: 165 kg

DRUGS (3)
  1. AVASTIN                            /00848101/ [Concomitant]
     Active Substance: SIMVASTATIN
     Indication: OVARIAN CANCER
     Dosage: 450 MILLIGRAM, CYCLICAL
     Route: 042
     Dates: start: 20171109, end: 20171109
  2. CARBOPLATIN. [Suspect]
     Active Substance: CARBOPLATIN
     Indication: OVARIAN CANCER
     Dosage: 500 MILLIGRAM, CYCLICAL
     Route: 042
     Dates: start: 20171109, end: 20171109
  3. ABRAXANE [Concomitant]
     Active Substance: PACLITAXEL
     Indication: OVARIAN CANCER
     Dosage: 200 MILLIGRAM, CYCLICAL
     Route: 042
     Dates: start: 20171109, end: 20171109

REACTIONS (5)
  - Hyperhidrosis [Recovered/Resolved]
  - Hypoxia [Recovered/Resolved]
  - Malaise [Recovered/Resolved]
  - Hypotension [Recovered/Resolved]
  - Pruritus generalised [Recovered/Resolved]

NARRATIVE: CASE EVENT DATE: 20171109
